FAERS Safety Report 8235160-8 (Version None)
Quarter: 2012Q1

REPORT INFORMATION
  Report Type: 
  Country: None (occurrence: None)
  Receive Date: 20120326
  Receipt Date: 20120314
  Transmission Date: 20120608
  Serious: Yes (Life-Threatening, Hospitalization)
  Sender: FDA-Public Use
  Company Number: FR-SANOFI-AVENTIS-2012SA017887

PATIENT
  Age: 79 Year
  Sex: Female

DRUGS (8)
  1. INDAPAMIDE [Suspect]
     Route: 048
     Dates: start: 20030601, end: 20120108
  2. DILTIAZEM HYDROCHLORIDE [Concomitant]
     Dates: start: 20030101
  3. CALCIUM CARBONATE [Concomitant]
     Indication: OSTEOPOROSIS
  4. EUROBIOL [Concomitant]
  5. ATORVASTATIN [Concomitant]
  6. OMEPRAZOLE [Concomitant]
  7. CHONDROSULF [Concomitant]
  8. SPASMINE [Concomitant]

REACTIONS (2)
  - HYPOKALAEMIA [None]
  - CARDIO-RESPIRATORY ARREST [None]
